FAERS Safety Report 18611456 (Version 1)
Quarter: 2020Q4

REPORT INFORMATION
  Report Type: Spontaneous
  Country: US (occurrence: US)
  Receive Date: 20201014
  Receipt Date: 20201014
  Transmission Date: 20210114
  Serious: Yes (Death)
  Sender: FDA-Public Use
  Company Number: None

PATIENT
  Age: 6 Decade
  Sex: Male

DRUGS (8)
  1. MEROPENEM. [Suspect]
     Active Substance: MEROPENEM
  2. INTERFERON ALFA NOS [Suspect]
     Active Substance: INTERFERON ALFA-2A OR INTERFERON ALFA-2B
     Indication: COVID-19
     Route: 055
     Dates: start: 2020
  3. LOPINAVIR-RITONAVIR [Suspect]
     Active Substance: LOPINAVIR\RITONAVIR
  4. CONTINUOUS RENAL REPLACEMENT THERAPY [Suspect]
     Active Substance: UNSPECIFIED INGREDIENT
  5. METHYLPREDNISOLONE. [Suspect]
     Active Substance: METHYLPREDNISOLONE
  6. PIPERACILLIN AND TAZOBACTAM [Suspect]
     Active Substance: PIPERACILLIN SODIUM\TAZOBACTAM SODIUM
  7. VORICONAZOLE. [Suspect]
     Active Substance: VORICONAZOLE
  8. UMIFENOVIR. [Suspect]
     Active Substance: UMIFENOVIR

REACTIONS (6)
  - Nosocomial infection [None]
  - Immunosuppression [None]
  - Disease progression [None]
  - Product use in unapproved indication [None]
  - Liver transplant [None]
  - Multiple organ dysfunction syndrome [None]
